FAERS Safety Report 14871523 (Version 2)
Quarter: 2018Q4

REPORT INFORMATION
  Report Type: Spontaneous
  Country: US (occurrence: US)
  Receive Date: 20180509
  Receipt Date: 20181023
  Transmission Date: 20190204
  Serious: Yes (Other)
  Sender: FDA-Public Use
  Company Number: US-ASTRAZENECA-2018SE52099

PATIENT
  Age: 757 Month
  Sex: Male
  Weight: 108.9 kg

DRUGS (36)
  1. PRILOSEC [Suspect]
     Active Substance: OMEPRAZOLE MAGNESIUM
     Route: 048
     Dates: start: 20170208
  2. FUROSEMIDE. [Concomitant]
     Active Substance: FUROSEMIDE
     Indication: DIURETIC THERAPY
     Dates: start: 2003
  3. ASPIRIN. [Concomitant]
     Active Substance: ASPIRIN
     Indication: CARDIAC DISORDER
     Dates: start: 1998
  4. ABILIFY [Concomitant]
     Active Substance: ARIPIPRAZOLE
  5. TESTOSTERONE CIPIONATE [Concomitant]
     Active Substance: TESTOSTERONE
     Indication: MINERAL SUPPLEMENTATION
     Dates: start: 20150407, end: 20150911
  6. BACTROBAN [Concomitant]
     Active Substance: MUPIROCIN\MUPIROCIN CALCIUM
  7. LISINOPRIL. [Concomitant]
     Active Substance: LISINOPRIL
     Indication: BLOOD PRESSURE MEASUREMENT
     Dates: start: 20150303, end: 20160418
  8. TRADJENTA [Concomitant]
     Active Substance: LINAGLIPTIN
     Indication: DIABETES MELLITUS
     Dates: start: 2003, end: 2015
  9. PERCOCET [Concomitant]
     Active Substance: ACETAMINOPHEN\OXYCODONE HYDROCHLORIDE
     Indication: PAIN
  10. LINAGLIPTIN [Concomitant]
     Active Substance: LINAGLIPTIN
     Indication: MINERAL SUPPLEMENTATION
     Dates: start: 20141222, end: 20151104
  11. OXCARBAZEPINE. [Concomitant]
     Active Substance: OXCARBAZEPINE
     Indication: ANTICONVULSANT DRUG LEVEL THERAPEUTIC
     Dates: start: 2003
  12. VITAMIN D [Concomitant]
     Active Substance: CHOLECALCIFEROL
  13. PRILOSEC [Suspect]
     Active Substance: OMEPRAZOLE MAGNESIUM
     Dosage: 20 MG CAPSULE
     Route: 048
     Dates: start: 2006, end: 2016
  14. PRILOSEC [Suspect]
     Active Substance: OMEPRAZOLE MAGNESIUM
     Route: 048
     Dates: end: 20170208
  15. MOTRIN [Concomitant]
     Active Substance: IBUPROFEN
  16. HYTRIN [Concomitant]
     Active Substance: TERAZOSIN HYDROCHLORIDE
  17. PRILOSEC [Suspect]
     Active Substance: OMEPRAZOLE MAGNESIUM
     Dosage: 20 Q AM
     Route: 048
     Dates: start: 2006, end: 2016
  18. PRILOSEC OTC [Suspect]
     Active Substance: OMEPRAZOLE MAGNESIUM
     Indication: GASTROOESOPHAGEAL REFLUX DISEASE
     Route: 048
     Dates: start: 2006, end: 2016
  19. PRILOSEC OTC [Suspect]
     Active Substance: OMEPRAZOLE MAGNESIUM
     Indication: GASTROOESOPHAGEAL REFLUX DISEASE
     Route: 048
     Dates: start: 2009, end: 2016
  20. FERROUS SULFATE. [Concomitant]
     Active Substance: FERROUS SULFATE
     Indication: MINERAL SUPPLEMENTATION
     Dates: start: 2008
  21. METFORMIN [Concomitant]
     Active Substance: METFORMIN HYDROCHLORIDE
     Indication: TYPE 2 DIABETES MELLITUS
     Dates: start: 2003
  22. PREGABALIN. [Concomitant]
     Active Substance: PREGABALIN
     Indication: NEURALGIA
     Dates: start: 20141222, end: 20150818
  23. SUBOXONE [Concomitant]
     Active Substance: BUPRENORPHINE HYDROCHLORIDE\NALOXONE HYDROCHLORIDE
     Indication: PAIN
     Dates: start: 2006
  24. PROTONIX [Suspect]
     Active Substance: PANTOPRAZOLE SODIUM
     Indication: GASTROOESOPHAGEAL REFLUX DISEASE
     Route: 065
     Dates: start: 2006, end: 2016
  25. TUMS [Concomitant]
     Active Substance: CALCIUM CARBONATE
     Dates: start: 2016
  26. PROTONIX [Suspect]
     Active Substance: PANTOPRAZOLE SODIUM
     Indication: GASTROOESOPHAGEAL REFLUX DISEASE
     Dosage: GENERIC
     Route: 065
     Dates: start: 2006, end: 2016
  27. TERAZOSIN [Concomitant]
     Active Substance: TERAZOSIN\TERAZOSIN HYDROCHLORIDE
     Indication: PROSTATE CANCER
     Dates: start: 20150525, end: 20151112
  28. ZOLOFT [Concomitant]
     Active Substance: SERTRALINE HYDROCHLORIDE
     Indication: DEPRESSION
     Dates: start: 2003
  29. TRILEPTAL [Concomitant]
     Active Substance: OXCARBAZEPINE
  30. JANUVIA [Concomitant]
     Active Substance: SITAGLIPTIN PHOSPHATE
  31. INSULIN [Concomitant]
     Active Substance: INSULIN NOS
  32. TUMS [Concomitant]
     Active Substance: CALCIUM CARBONATE
     Dates: start: 1980, end: 2000
  33. IBUPROFEN. [Concomitant]
     Active Substance: IBUPROFEN
  34. PHENTERMINE. [Concomitant]
     Active Substance: PHENTERMINE
     Indication: MINERAL SUPPLEMENTATION
     Dates: start: 2008
  35. SILDENAFIL. [Concomitant]
     Active Substance: SILDENAFIL
     Indication: MINERAL SUPPLEMENTATION
     Dates: start: 20150203, end: 20160526
  36. ATORVASTATIN [Concomitant]
     Active Substance: ATORVASTATIN

REACTIONS (1)
  - Chronic kidney disease [Not Recovered/Not Resolved]

NARRATIVE: CASE EVENT DATE: 201512
